FAERS Safety Report 5957800-6 (Version None)
Quarter: 2008Q4

REPORT INFORMATION
  Report Type: 
  Country: None (occurrence: None)
  Receive Date: 20081107
  Receipt Date: 20081030
  Transmission Date: 20090506
  Serious: Yes (Other)
  Sender: FDA-Public Use
  Company Number: 2008BI029386

PATIENT
  Age: 83 Year
  Sex: Male

DRUGS (2)
  1. AVONEX [Suspect]
     Indication: MULTIPLE SCLEROSIS
     Dosage: 30 UG;QW;IM : 30 UG;QW;IM
     Route: 030
     Dates: start: 19990208, end: 20030101
  2. AVONEX [Suspect]
     Indication: MULTIPLE SCLEROSIS
     Dosage: 30 UG;QW;IM : 30 UG;QW;IM
     Route: 030
     Dates: start: 20030101

REACTIONS (2)
  - PNEUMONIA [None]
  - WHITE BLOOD CELL COUNT INCREASED [None]
